FAERS Safety Report 8346332-6 (Version None)
Quarter: 2012Q2

REPORT INFORMATION
  Report Type: 
  Country: None (occurrence: None)
  Receive Date: 20120509
  Receipt Date: 20120503
  Transmission Date: 20120825
  Serious: Yes (Hospitalization)
  Sender: FDA-Public Use
  Company Number: FI-PFIZER INC-2012108422

PATIENT
  Age: 29 Year
  Sex: Male

DRUGS (1)
  1. VFEND [Suspect]
     Indication: BRONCHOPULMONARY ASPERGILLOSIS
     Dosage: 400 MG
     Route: 048
     Dates: start: 20110224, end: 20120329

REACTIONS (1)
  - CHOLECYSTITIS ACUTE [None]
